FAERS Safety Report 4847135-7 (Version None)
Quarter: 2005Q4

REPORT INFORMATION
  Report Type: 
  Country: None (occurrence: None)
  Receive Date: 20051206
  Receipt Date: 20051206
  Transmission Date: 20060501
  Serious: Yes (Life-Threatening)
  Sender: FDA-Public Use
  Company Number: None

PATIENT
  Sex: Female
  Weight: 58.9676 kg

DRUGS (1)
  1. STIMATE [Suspect]
     Indication: VON WILLEBRAND'S DISEASE
     Dosage: 150 MCG  2 SPRAY X ONE  IN
     Route: 055
     Dates: start: 20051123

REACTIONS (5)
  - COMA [None]
  - CONVULSION [None]
  - MEDICATION ERROR [None]
  - POST PROCEDURAL COMPLICATION [None]
  - WATER INTOXICATION [None]
